FAERS Safety Report 8521267 (Version 12)
Quarter: 2015Q4

REPORT INFORMATION
  Report Type: Report from Study
  Country: IN (occurrence: IN)
  Receive Date: 20120419
  Receipt Date: 20151122
  Transmission Date: 20160305
  Serious: Yes (Death, Hospitalization, Other)
  Sender: FDA-Public Use
  Company Number: PHHY2012IN032764

PATIENT
  Sex: Male

DRUGS (3)
  1. GLIVEC [Suspect]
     Active Substance: IMATINIB MESYLATE
     Indication: GASTROINTESTINAL STROMAL TUMOUR
     Dosage: 400 MG, UNK
     Route: 048
  2. GLIVEC [Suspect]
     Active Substance: IMATINIB MESYLATE
     Dosage: 800 MG, UNK
     Route: 065
  3. GLIVEC [Suspect]
     Active Substance: IMATINIB MESYLATE
     Indication: CHRONIC MYELOID LEUKAEMIA
     Dosage: 600 MG, UNK
     Route: 048

REACTIONS (9)
  - Death [Fatal]
  - No therapeutic response [Unknown]
  - Typhoid fever [Unknown]
  - Abdominal pain upper [Recovering/Resolving]
  - Back pain [Unknown]
  - Influenza [Unknown]
  - Neoplasm [Unknown]
  - Gastric infection [Unknown]
  - Metastases to stomach [Unknown]
